FAERS Safety Report 19998158 (Version 1)
Quarter: 2021Q4

REPORT INFORMATION
  Report Type: Spontaneous
  Country: US (occurrence: US)
  Receive Date: 20211026
  Receipt Date: 20211026
  Transmission Date: 20220303
  Serious: No
  Sender: FDA-Public Use
  Company Number: US-NOVARTISTESTPH-NVSC2021US243745

PATIENT
  Sex: Female

DRUGS (1)
  1. ALPRAZOLAM [Suspect]
     Active Substance: ALPRAZOLAM
     Indication: Product used for unknown indication
     Dosage: 1 MG
     Route: 048

REACTIONS (5)
  - Speech disorder [Unknown]
  - Visual impairment [Unknown]
  - Illness [Unknown]
  - Product prescribing error [Unknown]
  - Product dose omission issue [Unknown]
